FAERS Safety Report 7043390-6 (Version None)
Quarter: 2010Q4

REPORT INFORMATION
  Report Type: 
  Country: None (occurrence: None)
  Receive Date: 20101013
  Receipt Date: 20101006
  Transmission Date: 20110411
  Serious: Yes (Life-Threatening, Other)
  Sender: FDA-Public Use
  Company Number: US-GENZYME-HECT-1000095

PATIENT
  Sex: Male

DRUGS (1)
  1. HECTOROL [Suspect]
     Indication: HYPERPARATHYROIDISM SECONDARY
     Dosage: 2 MCG, 3X/W
     Route: 042
     Dates: start: 20100929

REACTIONS (1)
  - CARDIOPULMONARY FAILURE [None]
